FAERS Safety Report 15483752 (Version 1)
Quarter: 2018Q4

REPORT INFORMATION
  Report Type: Spontaneous
  Country: JP (occurrence: JP)
  Receive Date: 20181010
  Receipt Date: 20181010
  Transmission Date: 20190205
  Serious: Yes (Hospitalization, Other)
  Sender: FDA-Public Use
  Company Number: JP-SA-2018SA270565

PATIENT
  Age: 71 Year
  Sex: Male

DRUGS (3)
  1. BETAMETHASONE. [Suspect]
     Active Substance: BETAMETHASONE
     Indication: PRURITUS
     Dosage: 0.5 MG, QD
     Route: 048
  2. HYDROCORTISONE. [Suspect]
     Active Substance: HYDROCORTISONE
     Dosage: 200 MG, QD, INFUSION
  3. HYDROCORTISONE. [Suspect]
     Active Substance: HYDROCORTISONE
     Indication: ADRENAL INSUFFICIENCY
     Dosage: 15 MG, QD
     Route: 048

REACTIONS (12)
  - Fasciitis [Recovered/Resolved]
  - Drug ineffective [Unknown]
  - Familial mediterranean fever [Recovered/Resolved]
  - Pleurisy [Recovered/Resolved]
  - Myositis [Recovered/Resolved]
  - Skin atrophy [Unknown]
  - Vomiting [Recovered/Resolved]
  - Pyrexia [Recovered/Resolved]
  - Anorexia nervosa [Recovered/Resolved]
  - Abdominal pain [Recovered/Resolved]
  - Adrenal insufficiency [Recovered/Resolved]
  - Pain in extremity [Recovered/Resolved]
